FAERS Safety Report 7627107-X (Version None)
Quarter: 2011Q3

REPORT INFORMATION
  Report Type: 
  Country: None (occurrence: None)
  Receive Date: 20110714
  Receipt Date: 20110630
  Transmission Date: 20111222
  Serious: Yes (Other)
  Sender: FDA-Public Use
  Company Number: 1000022051

PATIENT
  Age: 73 Year
  Sex: Male

DRUGS (6)
  1. OXYGEN (OXYGEN) (OXYGEN) [Concomitant]
  2. ROFLUMILAST (ROFLUMILAST) (500 MICROGRAM, TABLETS) [Suspect]
     Indication: CHRONIC OBSTRUCTIVE PULMONARY DISEASE
     Dates: start: 20110426, end: 20110503
  3. SINTROM [Suspect]
     Indication: ATRIAL FIBRILLATION
     Dosage: 2.2857 MG (16 MG, 1 IN 1 WK); 2.1429 MG (15 MG, 1 IN 1 WK)
     Dates: start: 20110404
  4. SINTROM [Suspect]
     Indication: ATRIAL FIBRILLATION
     Dosage: 2.2857 MG (16 MG, 1 IN 1 WK); 2.1429 MG (15 MG, 1 IN 1 WK)
     Dates: start: 20110307
  5. SINTROM [Suspect]
     Indication: ATRIAL FIBRILLATION
     Dosage: 2.2857 MG (16 MG, 1 IN 1 WK); 2.1429 MG (15 MG, 1 IN 1 WK)
     Dates: start: 20110505, end: 20110518
  6. SINTROM [Suspect]
     Indication: ATRIAL FIBRILLATION
     Dosage: 2.2857 MG (16 MG, 1 IN 1 WK); 2.1429 MG (15 MG, 1 IN 1 WK)
     Dates: start: 20110519

REACTIONS (2)
  - DRUG INTERACTION [None]
  - COAGULOPATHY [None]
